FAERS Safety Report 4470131-9 (Version None)
Quarter: 2004Q3

REPORT INFORMATION
  Report Type: 
  Country: None (occurrence: None)
  Receive Date: 20040910
  Receipt Date: 20040720
  Transmission Date: 20050211
  Serious: No
  Sender: FDA-Public Use
  Company Number: 2004-00243

PATIENT
  Age: 74 Year
  Sex: Male
  Weight: 62.6 kg

DRUGS (3)
  1. VELCADE [Suspect]
     Indication: MULTIPLE MYELOMA
     Dosage: 2.10 MG, INTRAVENOUS
     Route: 042
     Dates: start: 20040315, end: 20040720
  2. ATENOLOL [Concomitant]
  3. LIPITOR [Concomitant]

REACTIONS (2)
  - BLOOD CREATININE INCREASED [None]
  - FATIGUE [None]
